FAERS Safety Report 9102897 (Version 1)
Quarter: 2013Q1

REPORT INFORMATION
  Report Type: Spontaneous
  Country: US (occurrence: US)
  Receive Date: 20130219
  Receipt Date: 20130219
  Transmission Date: 20140127
  Serious: Yes (Other)
  Sender: FDA-Public Use
  Company Number: US-ASTELLAS-2013US001721

PATIENT
  Sex: Female

DRUGS (2)
  1. TARCEVA [Suspect]
     Indication: LUNG CANCER METASTATIC
     Dosage: 150 MG, UID/QD
     Route: 048
  2. TARCEVA [Suspect]
     Dosage: 100 MG, UID/QD
     Route: 048

REACTIONS (10)
  - Hip arthroplasty [Unknown]
  - Cholecystectomy [Unknown]
  - Gastric ulcer haemorrhage [Unknown]
  - Gastritis [Unknown]
  - Weight decreased [Unknown]
  - Skin disorder [Unknown]
  - Rash [Unknown]
  - Ingrowing nail [Unknown]
  - Dry eye [Unknown]
  - Diarrhoea [Unknown]
